FAERS Safety Report 9959257 (Version 2)
Quarter: 2014Q1

REPORT INFORMATION
  Report Type: Report from Study
  Country: US (occurrence: US)
  Receive Date: 20140305
  Receipt Date: 20140305
  Transmission Date: 20141002
  Serious: No
  Sender: FDA-Public Use
  Company Number: US-ABBVIE-13P-163-1097059-00

PATIENT
  Age: 70 Year
  Sex: Male

DRUGS (8)
  1. HUMIRA [Suspect]
     Indication: CROHN^S DISEASE
     Dates: start: 20130226
  2. DILTIAZEM [Concomitant]
     Indication: HYPERTENSION
     Dosage: 180 MG DAILY
  3. ATENOLOL [Concomitant]
     Indication: HYPERTENSION
     Dosage: 25 MG DAILY
  4. ATORVASTATIN [Concomitant]
     Indication: BLOOD CHOLESTEROL INCREASED
     Dosage: 20 MG DAILY
  5. TAMSULOSIN HCL [Concomitant]
     Indication: PROSTATOMEGALY
  6. TUMS [Concomitant]
     Indication: PRODUCT USED FOR UNKNOWN INDICATION
  7. GAS-X [Concomitant]
     Indication: PRODUCT USED FOR UNKNOWN INDICATION
  8. IBUPROFEN [Concomitant]
     Indication: PRODUCT USED FOR UNKNOWN INDICATION

REACTIONS (10)
  - Constipation [Recovering/Resolving]
  - Dyspepsia [Not Recovered/Not Resolved]
  - Crohn^s disease [Recovering/Resolving]
  - Flatulence [Recovering/Resolving]
  - Gastrointestinal pain [Recovering/Resolving]
  - Dyspepsia [Unknown]
  - Prostatomegaly [Recovering/Resolving]
  - Chromaturia [Recovering/Resolving]
  - Blood urine present [Recovering/Resolving]
  - Urinary tract infection [Recovering/Resolving]
